FAERS Safety Report 5837479-4 (Version None)
Quarter: 2008Q3

REPORT INFORMATION
  Report Type: 
  Country: None (occurrence: None)
  Receive Date: 20080807
  Receipt Date: 20080718
  Transmission Date: 20090109
  Serious: No
  Sender: FDA-Public Use
  Company Number: US-BOEHRINGER INGELHEIM GMBH, GERMANY-2008-BP-11370BP

PATIENT
  Sex: Female

DRUGS (8)
  1. SPIRIVA [Suspect]
     Indication: CHRONIC OBSTRUCTIVE PULMONARY DISEASE
     Route: 055
  2. ASMANEX TWISTHALER [Concomitant]
     Indication: CHRONIC OBSTRUCTIVE PULMONARY DISEASE
     Route: 055
     Dates: start: 20071201, end: 20080715
  3. COUMADIN [Concomitant]
     Indication: PULMONARY THROMBOSIS
     Route: 048
     Dates: start: 20020101
  4. SYNTHROID [Concomitant]
     Indication: HYPOTHYROIDISM
     Route: 048
     Dates: start: 20020101
  5. LASIX [Concomitant]
     Indication: PULMONARY OEDEMA
     Route: 048
     Dates: start: 20020101
  6. FOSAMAX [Concomitant]
     Indication: OSTEOPOROSIS
     Route: 048
     Dates: start: 20020101
  7. TYLENOL EXTRA STRENGTH [Concomitant]
  8. CALCIUM [Concomitant]

REACTIONS (3)
  - DRY MOUTH [None]
  - PRURITUS [None]
  - RASH PAPULAR [None]
